FAERS Safety Report 18309485 (Version 1)
Quarter: 2020Q3

REPORT INFORMATION
  Report Type: Spontaneous
  Country: US (occurrence: US)
  Receive Date: 20200924
  Receipt Date: 20200924
  Transmission Date: 20201103
  Serious: Yes (Hospitalization, Other)
  Sender: FDA-Public Use
  Company Number: US-SA-2020SA255954

PATIENT

DRUGS (4)
  1. VANCOMYCIN [Concomitant]
     Active Substance: VANCOMYCIN
     Indication: ANTIBIOTIC THERAPY
  2. FLUCONAZOLE. [Concomitant]
     Active Substance: FLUCONAZOLE
     Indication: ANTIBIOTIC THERAPY
  3. ENOXAPARIN SODIUM. [Suspect]
     Active Substance: ENOXAPARIN SODIUM
     Indication: THROMBOLYSIS
     Dosage: UNK
  4. WARFARIN SODIUM. [Suspect]
     Active Substance: WARFARIN SODIUM
     Indication: THROMBOLYSIS
     Dosage: UNK

REACTIONS (12)
  - Chest discomfort [Recovered/Resolved]
  - Leukocytosis [Recovered/Resolved]
  - Thrombosis [Recovered/Resolved]
  - C-reactive protein increased [Recovered/Resolved]
  - Metabolic acidosis [Recovered/Resolved]
  - Pyrexia [Recovered/Resolved]
  - Heart sounds abnormal [Recovered/Resolved]
  - Thrombocytopenia [Recovered/Resolved]
  - Pleural effusion [Recovered/Resolved]
  - Aneurysm [Recovered/Resolved]
  - Anaemia [Recovered/Resolved]
  - Renal impairment [Recovered/Resolved]
